FAERS Safety Report 12417188 (Version 1)
Quarter: 2016Q2

REPORT INFORMATION
  Report Type: Report from Study
  Country: PT (occurrence: PT)
  Receive Date: 20160530
  Receipt Date: 20160530
  Transmission Date: 20160815
  Serious: Yes (Other)
  Sender: FDA-Public Use
  Company Number: PT-JNJFOC-20140800113

PATIENT
  Age: 67 Year
  Sex: Female

DRUGS (2)
  1. SIMPONI [Suspect]
     Active Substance: GOLIMUMAB
     Indication: PRODUCT USED FOR UNKNOWN INDICATION
     Route: 058
  2. SIMPONI [Suspect]
     Active Substance: GOLIMUMAB
     Indication: PRODUCT USED FOR UNKNOWN INDICATION
     Route: 058
     Dates: start: 20120421

REACTIONS (5)
  - Anaemia [Not Recovered/Not Resolved]
  - Malaise [Unknown]
  - Spinal disorder [Not Recovered/Not Resolved]
  - Haematochezia [Unknown]
  - Drug ineffective [Unknown]
